FAERS Safety Report 10413995 (Version 1)
Quarter: 2014Q3

REPORT INFORMATION
  Report Type: Spontaneous
  Country: CO (occurrence: None)
  Receive Date: 20140825
  Receipt Date: 20140825
  Transmission Date: 20150326
  Serious: Yes (Other)
  Sender: FDA-Public Use
  Company Number: 2014-20199

PATIENT
  Age: 73 Year
  Sex: Male

DRUGS (1)
  1. EYLEA [Suspect]
     Active Substance: AFLIBERCEPT
     Indication: AGE-RELATED MACULAR DEGENERATION
     Route: 031
     Dates: start: 20140718

REACTIONS (4)
  - Medication error [None]
  - Visual impairment [None]
  - Ocular hyperaemia [None]
  - Blindness transient [None]

NARRATIVE: CASE EVENT DATE: 20140720
